FAERS Safety Report 24608368 (Version 1)
Quarter: 2024Q4

REPORT INFORMATION
  Report Type: Spontaneous
  Country: LB (occurrence: LB)
  Receive Date: 20241112
  Receipt Date: 20241112
  Transmission Date: 20250115
  Serious: Yes (Death)
  Sender: PFIZER
  Company Number: LB-PFIZER INC-PV202400145640

PATIENT
  Age: 21 Year
  Sex: Female

DRUGS (1)
  1. IBRANCE [Suspect]
     Active Substance: PALBOCICLIB
     Indication: Breast cancer metastatic
     Dosage: FOR 21DAYS THEN STOP DOR 1 WEEK
     Route: 048

REACTIONS (1)
  - Death [Fatal]
